FAERS Safety Report 21926900 (Version 1)
Quarter: 2023Q1

REPORT INFORMATION
  Report Type: Spontaneous
  Country: US (occurrence: None)
  Receive Date: 20230128
  Receipt Date: 20230128
  Transmission Date: 20230418
  Serious: Yes (Hospitalization)
  Sender: FDA-Public Use
  Company Number: None

PATIENT
  Sex: Male
  Weight: 59.6 kg

DRUGS (9)
  1. CAPECITABINE [Suspect]
     Active Substance: CAPECITABINE
     Indication: Breast cancer
     Dosage: FREQUENCY : TWICE A DAY;?
     Route: 048
     Dates: start: 20221122
  2. CAPECITABINE [Suspect]
     Active Substance: CAPECITABINE
     Indication: Breast cancer
     Dosage: FREQUENCY : TWICE A DAY;?
     Route: 048
     Dates: start: 20221122
  3. Farxiga 5 mg [Concomitant]
  4. Fenofibrate 134 mg [Concomitant]
  5. Gentak 0.3% Ophthalmic ointment [Concomitant]
  6. LEVETIRACETAM [Concomitant]
     Active Substance: LEVETIRACETAM
  7. multivitamin 1 tablet [Concomitant]
  8. Vitamin D3 25 mcg [Concomitant]
  9. Xultophy Subcutaneous Solution Pen [Concomitant]

REACTIONS (2)
  - Thrombosis [None]
  - Diarrhoea [None]
